FAERS Safety Report 7217282-3 (Version None)
Quarter: 2011Q1

REPORT INFORMATION
  Report Type: 
  Country: None (occurrence: None)
  Receive Date: 20110110
  Receipt Date: 20101221
  Transmission Date: 20110831
  Serious: No
  Sender: FDA-Public Use
  Company Number: US-B.I. PHARMACEUTICALS,INC./RIDGEFIELD-2010-BP-15290BP

PATIENT
  Sex: Female

DRUGS (5)
  1. CARTIA XT [Concomitant]
     Indication: HYPERTENSION
     Dosage: 240 MG
  2. SYNTHROID [Concomitant]
     Indication: THYROID DISORDER
     Dosage: 75 MG
  3. LANSOPRAZOLE [Concomitant]
     Indication: GASTROOESOPHAGEAL REFLUX DISEASE
     Dosage: 30 MG
     Dates: start: 20080101
  4. DIGOXIN [Concomitant]
     Indication: ATRIAL FIBRILLATION
     Dosage: 0.125 MG
     Dates: start: 20080101
  5. PRADAXA [Suspect]
     Indication: ATRIAL FIBRILLATION
     Dosage: 300 MG
     Route: 048
     Dates: start: 20101201

REACTIONS (2)
  - CHEST PAIN [None]
  - FLATULENCE [None]
